FAERS Safety Report 8735349 (Version 4)
Quarter: 2012Q4

REPORT INFORMATION
  Report Type: 
  Country: CZ (occurrence: CZ)
  Receive Date: 20120822
  Receipt Date: 20121106
  Transmission Date: 20130627
  Serious: Yes (Hospitalization, Disabling, Other)
  Sender: FDA-Public Use
  Company Number: CZ-AMGEN-CZESP2012052370

PATIENT
  Age: 66 Year
  Sex: Female

DRUGS (17)
  1. ENBREL [Suspect]
     Indication: PSORIATIC ARTHROPATHY
     Dosage: UNK
     Route: 058
     Dates: start: 20090119, end: 20120305
  2. ENBREL [Suspect]
     Indication: PSORIASIS
  3. ENBREL [Suspect]
     Indication: RHEUMATOID ARTHRITIS
  4. ARAVA [Suspect]
     Indication: RHEUMATOID ARTHRITIS
     Dosage: 20 mg, UNK
     Dates: start: 20060228, end: 20120305
  5. PREDNISON [Suspect]
     Indication: RHEUMATOID ARTHRITIS
     Dosage: UNK
     Dates: start: 20120502
  6. VIGANTOL                           /00318501/ [Concomitant]
     Dosage: UNK
  7. KALNORMIN [Concomitant]
     Dosage: UNK
  8. LETROX [Concomitant]
     Dosage: UNK
  9. PREDUCTAL                          /00489601/ [Concomitant]
     Dosage: UNK
  10. LOSARTAN POTASSIUM [Concomitant]
     Dosage: UNK
  11. HUMULIN [Concomitant]
     Dosage: UNK
  12. LANZUL [Concomitant]
     Dosage: UNK
  13. MONO MACK [Concomitant]
     Dosage: UNK
  14. APO-METOPROLOL [Concomitant]
     Dosage: UNK
  15. ATORVASTATIN CALCIUM [Concomitant]
     Dosage: UNK
  16. CARDILAN                           /00152401/ [Concomitant]
     Dosage: UNK
  17. MODURETIC [Concomitant]
     Dosage: UNK

REACTIONS (5)
  - Bronchopleural fistula [Not Recovered/Not Resolved]
  - Pneumothorax [Not Recovered/Not Resolved]
  - Cell-mediated immune deficiency [Not Recovered/Not Resolved]
  - Infectious pleural effusion [Not Recovered/Not Resolved]
  - Tuberculous pleurisy [Not Recovered/Not Resolved]
